FAERS Safety Report 17865501 (Version 1)
Quarter: 2020Q2

REPORT INFORMATION
  Report Type: Spontaneous
  Country: FR (occurrence: FR)
  Receive Date: 20200605
  Receipt Date: 20200605
  Transmission Date: 20200714
  Serious: Yes (Hospitalization)
  Sender: FDA-Public Use
  Company Number: FR-MYLANLABS-2020M1054100

PATIENT
  Age: 22 Year
  Sex: Female
  Weight: 55 kg

DRUGS (3)
  1. LOXAPAC                            /00401802/ [Suspect]
     Active Substance: LOXAPINE SUCCINATE
     Indication: PRODUCT USED FOR UNKNOWN INDICATION
     Dosage: 250 MILLIGRAM, TOTAL
     Route: 048
     Dates: start: 20200407, end: 20200407
  2. DIAZEPAM. [Suspect]
     Active Substance: DIAZEPAM
     Indication: PRODUCT USED FOR UNKNOWN INDICATION
     Dosage: 500 MILLIGRAM, TOTAL
     Route: 048
     Dates: start: 20200407, end: 20200407
  3. ZOLPIDEM [Suspect]
     Active Substance: ZOLPIDEM TARTRATE
     Indication: PRODUCT USED FOR UNKNOWN INDICATION
     Dosage: 280 MILLIGRAM, QD
     Route: 048
     Dates: start: 20200407, end: 20200407

REACTIONS (5)
  - Somnolence [Recovering/Resolving]
  - Poisoning deliberate [Recovered/Resolved]
  - Housebound [Recovered/Resolved with Sequelae]
  - Tachycardia [Recovered/Resolved]
  - Intentional overdose [Unknown]

NARRATIVE: CASE EVENT DATE: 20200407
